FAERS Safety Report 9340933 (Version 1)
Quarter: 2013Q2

REPORT INFORMATION
  Report Type: Other
  Country: IT (occurrence: IT)
  Receive Date: 20130610
  Receipt Date: 20130610
  Transmission Date: 20140414
  Serious: Yes (Hospitalization)
  Sender: FDA-Public Use
  Company Number: IT-ACTAVIS-2013-10672

PATIENT
  Age: 99 Year
  Sex: Female

DRUGS (4)
  1. ZOLPIDEM TARTRATE (UNKNOWN) [Suspect]
     Indication: DEPRESSION
     Dosage: 10 MG, DAILY
     Route: 048
     Dates: start: 20130219, end: 20130309
  2. LASIX /00032601/ [Suspect]
     Indication: HYPERTENSION
     Dosage: 125 MG, DAILY
     Route: 048
     Dates: start: 20130101
  3. ALDACTONE                          /00006201/ [Concomitant]
     Indication: PRODUCT USED FOR UNKNOWN INDICATION
     Route: 065
  4. LANOXIN [Concomitant]
     Indication: PRODUCT USED FOR UNKNOWN INDICATION
     Route: 065

REACTIONS (3)
  - Hypokalaemia [Recovered/Resolved]
  - Hyponatraemia [Recovered/Resolved]
  - Medication error [Recovered/Resolved]
